FAERS Safety Report 24704508 (Version 2)
Quarter: 2025Q1

REPORT INFORMATION
  Report Type: Spontaneous
  Country: US (occurrence: US)
  Receive Date: 20241206
  Receipt Date: 20250202
  Transmission Date: 20250409
  Serious: No
  Sender: NOVARTIS
  Company Number: US-002147023-NVSC2024US232890

PATIENT
  Age: 63 Year
  Sex: Male
  Weight: 62.6 kg

DRUGS (1)
  1. PLUVICTO [Suspect]
     Active Substance: LUTETIUM LU-177 VIPIVOTIDE TETRAXETAN
     Indication: Hormone-refractory prostate cancer
     Route: 042
     Dates: start: 20240618

REACTIONS (2)
  - General physical health deterioration [Unknown]
  - Diarrhoea [Recovered/Resolved]

NARRATIVE: CASE EVENT DATE: 20241201
